FAERS Safety Report 4364400-0 (Version None)
Quarter: 2004Q2

REPORT INFORMATION
  Report Type: 
  Country: None (occurrence: None)
  Receive Date: 20040521
  Receipt Date: 20040505
  Transmission Date: 20050107
  Serious: Yes (Hospitalization, Other)
  Sender: FDA-Public Use
  Company Number: 2004S1001321

PATIENT
  Age: 70 Year
  Sex: Female
  Weight: 70.7611 kg

DRUGS (2)
  1. NITROFURANTOIN [Suspect]
     Indication: KIDNEY INFECTION
     Dosage: 100 MG BID, ORAL
     Route: 048
     Dates: start: 20040421, end: 20040425
  2. PHENAZOPYRIDINE HCL TAB [Concomitant]

REACTIONS (5)
  - ASTHENIA [None]
  - FEELING ABNORMAL [None]
  - FEELING JITTERY [None]
  - HEADACHE [None]
  - NAUSEA [None]
